FAERS Safety Report 9341328 (Version 1)
Quarter: 2013Q2

REPORT INFORMATION
  Report Type: Spontaneous
  Country: BR (occurrence: None)
  Receive Date: 20130610
  Receipt Date: 20130610
  Transmission Date: 20140414
  Serious: Yes (Disabling, Other)
  Sender: FDA-Public Use
  Company Number: None

PATIENT
  Age: 65 Year
  Sex: Male
  Weight: 94 kg

DRUGS (1)
  1. GALVUS [Suspect]
     Indication: TYPE 2 DIABETES MELLITUS
     Route: 048
     Dates: start: 20100310, end: 20111006

REACTIONS (4)
  - Intraductal papillary-mucinous carcinoma of pancreas [None]
  - Pancreatitis [None]
  - Hyperglycaemia [None]
  - Diabetes mellitus inadequate control [None]
